FAERS Safety Report 6094136-X (Version None)
Quarter: 2009Q1

REPORT INFORMATION
  Report Type: 
  Country: None (occurrence: None)
  Receive Date: 20090224
  Receipt Date: 20090224
  Transmission Date: 20090719
  Serious: Yes (Other)
  Sender: FDA-Public Use
  Company Number: None

PATIENT
  Age: 41 Year
  Sex: Female
  Weight: 74.8435 kg

DRUGS (1)
  1. ULTRAM [Suspect]
     Indication: MUSCULOSKELETAL PAIN
     Dosage: 1 EVERY 5 HOURS
     Dates: start: 20090222, end: 20090222

REACTIONS (4)
  - FLUSHING [None]
  - HYPERHIDROSIS [None]
  - MIGRAINE [None]
  - NAUSEA [None]
